FAERS Safety Report 12289863 (Version 1)
Quarter: 2016Q2

REPORT INFORMATION
  Report Type: Spontaneous
  Country: US (occurrence: None)
  Receive Date: 20160420
  Receipt Date: 20160420
  Transmission Date: 20160815
  Serious: No
  Sender: FDA-Public Use
  Company Number: None

PATIENT
  Age: 31 Year
  Sex: Male
  Weight: 90.72 kg

DRUGS (3)
  1. PREDNISONE. [Suspect]
     Active Substance: PREDNISONE
     Indication: COUGH
     Route: 048
  2. MUCINEX [Concomitant]
     Active Substance: GUAIFENESIN
  3. AUGMENTIN [Concomitant]
     Active Substance: AMOXICILLIN\CLAVULANATE POTASSIUM

REACTIONS (4)
  - Middle insomnia [None]
  - Hyperhidrosis [None]
  - Nausea [None]
  - Anxiety [None]

NARRATIVE: CASE EVENT DATE: 20160311
